FAERS Safety Report 7222347-6 (Version None)
Quarter: 2011Q1

REPORT INFORMATION
  Report Type: 
  Country: None (occurrence: None)
  Receive Date: 20110103
  Receipt Date: 20101220
  Transmission Date: 20110831
  Serious: Yes (Death, Life-Threatening, Hospitalization, Other)
  Sender: FDA-Public Use
  Company Number: APP201001098

PATIENT
  Age: 83 Year
  Sex: Female

DRUGS (1)
  1. HEPARIN SODIUM INJECTION [Suspect]
     Indication: DIALYSIS
     Dosage: 2000 IU, DURING EACH DIALYSIS SESSION, INTRAVENOUS, 600 IU, 1 IN 1 HR, INTRAVENOUS DRIP
     Route: 042

REACTIONS (8)
  - DISEASE COMPLICATION [None]
  - PULMONARY EMBOLISM [None]
  - RENAL FAILURE [None]
  - SPLENIC INFARCTION [None]
  - DEEP VEIN THROMBOSIS [None]
  - COAGULATION TIME PROLONGED [None]
  - HEPARIN-INDUCED THROMBOCYTOPENIA [None]
  - STAPHYLOCOCCAL SEPSIS [None]
